FAERS Safety Report 4971024-0 (Version None)
Quarter: 2006Q2

REPORT INFORMATION
  Report Type: 
  Country: None (occurrence: None)
  Receive Date: 20060411
  Receipt Date: 20060411
  Transmission Date: 20061013
  Serious: Yes (Death, Life-Threatening, Hospitalization, Disabling)
  Sender: FDA-Public Use
  Company Number: None

PATIENT
  Age: 64 Year
  Sex: Female
  Weight: 70.7611 kg

DRUGS (1)
  1. FLUOROURACIL [Suspect]
     Indication: COLON CANCER
     Dosage: 4370 MG/92 ML 2 ML/HR X 46 HR IV
     Route: 042
     Dates: start: 20050518, end: 20050518

REACTIONS (4)
  - DRUG DISPENSING ERROR [None]
  - INAPPROPRIATE SCHEDULE OF DRUG ADMINISTRATION [None]
  - MEDICATION ERROR [None]
  - WRONG TECHNIQUE IN DRUG USAGE PROCESS [None]
